FAERS Safety Report 14908204 (Version 1)
Quarter: 2018Q2

REPORT INFORMATION
  Report Type: Spontaneous
  Country: US (occurrence: US)
  Receive Date: 20180430
  Receipt Date: 20180430
  Transmission Date: 20180711
  Serious: Yes (Hospitalization)
  Sender: FDA-Public Use
  Company Number: None

PATIENT
  Age: 60 Year
  Sex: Male

DRUGS (13)
  1. ADCIRCA [Concomitant]
     Active Substance: TADALAFIL
  2. METFORMIN [Concomitant]
     Active Substance: METFORMIN HYDROCHLORIDE
  3. ATENOLOL. [Concomitant]
     Active Substance: ATENOLOL
  4. FUROSEMIDE. [Concomitant]
     Active Substance: FUROSEMIDE
  5. BACLOFEN. [Concomitant]
     Active Substance: BACLOFEN
  6. NAPROXEN. [Concomitant]
     Active Substance: NAPROXEN
  7. LISINOPRIL. [Concomitant]
     Active Substance: LISINOPRIL
  8. LAMOTRIGINE. [Concomitant]
     Active Substance: LAMOTRIGINE
  9. ADORVASTATIN [Concomitant]
  10. ASPIRIN. [Concomitant]
     Active Substance: ASPIRIN
  11. ADCIRCA [Suspect]
     Active Substance: TADALAFIL
     Indication: PULMONARY ARTERIAL HYPERTENSION
     Dosage: ?          OTHER FREQUENCY:2 TABS DAILY;?
     Route: 048
     Dates: start: 20171214
  12. ORENITRAM [Concomitant]
     Active Substance: TREPROSTINIL
  13. LETAIRIS [Concomitant]
     Active Substance: AMBRISENTAN

REACTIONS (2)
  - Renal failure [None]
  - Respiratory failure [None]

NARRATIVE: CASE EVENT DATE: 20180421
